FAERS Safety Report 19578594 (Version 1)
Quarter: 2021Q3

REPORT INFORMATION
  Report Type: Report from Study
  Country: None (occurrence: US)
  Receive Date: 20210720
  Receipt Date: 20210720
  Transmission Date: 20211014
  Serious: Yes (Other)
  Sender: FDA-Public Use
  Company Number: US-ABBVIE-21K-163-3995916-00

PATIENT
  Sex: Female

DRUGS (1)
  1. HUMIRA [Suspect]
     Active Substance: ADALIMUMAB
     Indication: PSORIASIS
     Dosage: CITRATE FREE
     Route: 058

REACTIONS (7)
  - Pancreatic cyst [Not Recovered/Not Resolved]
  - Hepatic steatosis [Unknown]
  - Pancreatic disorder [Unknown]
  - Seborrhoea [Not Recovered/Not Resolved]
  - Pancreatic duct obstruction [Unknown]
  - Hepatic cyst [Unknown]
  - Hepatomegaly [Not Recovered/Not Resolved]
